FAERS Safety Report 5595451-6 (Version None)
Quarter: 2008Q1

REPORT INFORMATION
  Report Type: 
  Country: None (occurrence: None)
  Receive Date: 20080118
  Receipt Date: 20080115
  Transmission Date: 20080703
  Serious: Yes (Other)
  Sender: FDA-Public Use
  Company Number: NO-JNJFOC-20080103073

PATIENT
  Sex: Male

DRUGS (3)
  1. FUNGORAL [Suspect]
     Indication: DRUG USE FOR UNKNOWN INDICATION
     Route: 065
  2. BRONCYL [Concomitant]
     Route: 065
  3. ATACAND HCT [Concomitant]
     Route: 065

REACTIONS (1)
  - PANCREATITIS [None]
